FAERS Safety Report 5781146-2 (Version None)
Quarter: 2008Q2

REPORT INFORMATION
  Report Type: 
  Country: None (occurrence: None)
  Receive Date: 20080620
  Receipt Date: 20080613
  Transmission Date: 20081010
  Serious: Yes (Hospitalization, Other)
  Sender: FDA-Public Use
  Company Number: FR-GENENTECH-262782

PATIENT
  Age: 55 Year

DRUGS (3)
  1. RAPTIVA [Suspect]
     Indication: PSORIASIS
  2. CYCLOSPORINE [Concomitant]
     Indication: PSORIASIS
     Dosage: 75 MG, QD
  3. POVIDONE IODINE [Concomitant]
     Indication: DRUG USE FOR UNKNOWN INDICATION
     Route: 061

REACTIONS (3)
  - IODINE ALLERGY [None]
  - PSORIASIS [None]
  - VENOUS STASIS [None]
